FAERS Safety Report 10994511 (Version 2)
Quarter: 2015Q4

REPORT INFORMATION
  Report Type: Spontaneous
  Country: GB (occurrence: GB)
  Receive Date: 20150407
  Receipt Date: 20151125
  Transmission Date: 20160304
  Serious: Yes (Other)
  Sender: FDA-Public Use
  Company Number: GB-TEVA-552957ACC

PATIENT
  Age: 59 Year
  Sex: Female
  Weight: 85 kg

DRUGS (13)
  1. ASPIRIN. [Concomitant]
     Active Substance: ASPIRIN
     Dosage: STILL ON THIS
     Dates: start: 20001127
  2. CALCIUM CARBONATE. [Concomitant]
     Active Substance: CALCIUM CARBONATE
     Dosage: STILL ON THIS
     Dates: start: 20110728
  3. CARBOCISTEINE [Concomitant]
     Active Substance: CARBOCYSTEINE
     Dosage: STILL ON THIS
     Dates: start: 20110428
  4. LEVOTHYROXINE. [Concomitant]
     Active Substance: LEVOTHYROXINE
     Dosage: STILL ON THIS
     Dates: start: 20120419
  5. SERETIDE [Concomitant]
     Active Substance: FLUTICASONE FUROATE\SALMETEROL XINAFOATE
     Dosage: STILL ON THIS
     Dates: start: 20100630
  6. TIOTROPIUM [Concomitant]
     Active Substance: TIOTROPIUM
     Dosage: STILL ON THIS
     Dates: start: 20100630
  7. TRAMADOL. [Concomitant]
     Active Substance: TRAMADOL
     Dosage: STILL ON THIS
     Dates: start: 20130122
  8. METFOREM [Concomitant]
     Active Substance: METFORMIN HYDROCHLORIDE
     Dosage: STILL ON THIS
     Dates: start: 20140321
  9. ACIDEX [Concomitant]
     Active Substance: CALCIUM CARBONATE\SODIUM ALGINATE\SODIUM BICARBONATE
     Dosage: STILL ON THIS
     Dates: start: 20070419
  10. HYDROXYZINE HYDROCHLORIDE. [Interacting]
     Active Substance: HYDROXYZINE HYDROCHLORIDE
     Dosage: 25 MILLIGRAM DAILY; AT NIGHT
     Route: 048
  11. SIMVASTATIN. [Suspect]
     Active Substance: SIMVASTATIN
     Dosage: 40 MILLIGRAM DAILY; AT NIGHT
     Route: 048
  12. ALENDRONIC ACID [Concomitant]
     Active Substance: ALENDRONIC ACID
     Dosage: STILL ON THIS
     Dates: start: 20110728
  13. TERBUTALINE [Concomitant]
     Active Substance: TERBUTALINE
     Dosage: STILL ON THIS
     Dates: start: 20100512

REACTIONS (3)
  - Abdominal pain upper [Recovered/Resolved]
  - Vomiting [Recovered/Resolved]
  - Drug interaction [Unknown]
